FAERS Safety Report 8006332-2 (Version None)
Quarter: 2011Q4

REPORT INFORMATION
  Report Type: 
  Country: None (occurrence: None)
  Receive Date: 20111226
  Receipt Date: 20111220
  Transmission Date: 20120403
  Serious: Yes (Death, Hospitalization)
  Sender: FDA-Public Use
  Company Number: PHHY2011MX111058

PATIENT
  Sex: Male

DRUGS (5)
  1. LOBTIL [Concomitant]
  2. BALBULAM [Concomitant]
  3. RASILEZ [Suspect]
     Indication: HYPERTENSION
     Dosage: 1 DF, PER DAY
     Dates: start: 20080101
  4. SOMERAL [Concomitant]
  5. DITREI [Concomitant]

REACTIONS (3)
  - RENAL IMPAIRMENT [None]
  - NEURALGIA [None]
  - CARDIAC FAILURE [None]
